FAERS Safety Report 21633013 (Version 1)
Quarter: 2022Q4

REPORT INFORMATION
  Report Type: Spontaneous
  Country: US (occurrence: None)
  Receive Date: 20221122
  Receipt Date: 20221122
  Transmission Date: 20230113
  Serious: Yes (Hospitalization)
  Sender: FDA-Public Use
  Company Number: None

PATIENT
  Age: 61 Year
  Sex: Female
  Weight: 64.5 kg

DRUGS (8)
  1. TECARTUS [Suspect]
     Active Substance: BREXUCABTAGENE AUTOLEUCEL
     Indication: Mantle cell lymphoma
     Dosage: FREQUENCY : ONCE;?
     Route: 041
     Dates: start: 20220706, end: 20220706
  2. ACTEMRA [Concomitant]
     Active Substance: TOCILIZUMAB
     Dates: end: 20220711
  3. KINERET [Concomitant]
     Active Substance: ANAKINRA
     Dates: end: 20220721
  4. DECADRON [Concomitant]
     Active Substance: DEXAMETHASONE
     Dates: end: 20220723
  5. KEPPRA [Concomitant]
     Active Substance: LEVETIRACETAM
     Dates: start: 20220706, end: 20221122
  6. ZOVIRAX [Concomitant]
     Active Substance: ACYCLOVIR
     Dates: start: 20220706, end: 20221122
  7. MAXIPIME [Concomitant]
     Active Substance: CEFEPIME HYDROCHLORIDE
     Dates: end: 20220718
  8. VIMPAT [Concomitant]
     Active Substance: LACOSAMIDE
     Dates: end: 20220718

REACTIONS (2)
  - Cytokine release syndrome [None]
  - Immune effector cell-associated neurotoxicity syndrome [None]

NARRATIVE: CASE EVENT DATE: 20220706
